FAERS Safety Report 24527277 (Version 1)
Quarter: 2024Q4

REPORT INFORMATION
  Report Type: Spontaneous
  Country: DE (occurrence: DE)
  Receive Date: 20241021
  Receipt Date: 20241021
  Transmission Date: 20250114
  Serious: No
  Sender: ROCHE
  Company Number: DE-ROCHE-3546589

PATIENT
  Age: 51 Year
  Sex: Male

DRUGS (5)
  1. COBIMETINIB [Suspect]
     Active Substance: COBIMETINIB
     Indication: Erdheim-Chester disease
     Dosage: FOR 21 DAYS FOLLOWED BY A 7-DAY BREAK
     Route: 048
     Dates: start: 202005
  2. COBIMETINIB [Suspect]
     Active Substance: COBIMETINIB
     Dosage: DOSE REDUCED
     Route: 048
     Dates: end: 2021
  3. COBIMETINIB [Suspect]
     Active Substance: COBIMETINIB
     Route: 048
     Dates: start: 202207
  4. COBIMETINIB [Suspect]
     Active Substance: COBIMETINIB
     Dosage: DRUG STOPPED
     Route: 048
  5. COBIMETINIB [Suspect]
     Active Substance: COBIMETINIB
     Dosage: 7 DAYS OFF PER MONTH
     Route: 048
     Dates: start: 202307

REACTIONS (3)
  - Retinal vein thrombosis [Recovered/Resolved]
  - Diarrhoea [Recovered/Resolved]
  - Cystoid macular oedema [Recovered/Resolved]

NARRATIVE: CASE EVENT DATE: 20210101
